FAERS Safety Report 10302833 (Version 3)
Quarter: 2015Q1

REPORT INFORMATION
  Report Type: Report from Study
  Country: ES (occurrence: ES)
  Receive Date: 20140714
  Receipt Date: 20150316
  Transmission Date: 20150720
  Serious: Yes (Other)
  Sender: FDA-Public Use
  Company Number: ES-GLAXOSMITHKLINE-B1013558A

PATIENT
  Age: 45 Year
  Sex: Male
  Weight: 70 kg

DRUGS (1)
  1. DABRAFENIB [Suspect]
     Active Substance: DABRAFENIB
     Indication: METASTATIC MALIGNANT MELANOMA
     Dates: start: 20130611, end: 20131230

REACTIONS (6)
  - Hyperkeratosis [Recovered/Resolved]
  - Alopecia [Recovered/Resolved]
  - Hair texture abnormal [Recovered/Resolved]
  - Ocular hyperaemia [Recovered/Resolved]
  - Keratitis [Not Recovered/Not Resolved]
  - Palmoplantar keratoderma [Recovered/Resolved]

NARRATIVE: CASE EVENT DATE: 20130709
